FAERS Safety Report 5263578-4 (Version None)
Quarter: 2007Q1

REPORT INFORMATION
  Report Type: 
  Country: None (occurrence: None)
  Receive Date: 20061213
  Receipt Date: 20030729
  Transmission Date: 20070707
  Serious: Yes (Hospitalization)
  Sender: FDA-Public Use
  Company Number: 2003UW09626

PATIENT
  Age: 43 Year
  Sex: Male
  Weight: 81.1939 kg

DRUGS (1)
  1. IRESSA [Suspect]
     Indication: PANCREATIC CARCINOMA
     Dosage: 250 MG PO
     Route: 048

REACTIONS (1)
  - PULMONARY FIBROSIS [None]
